FAERS Safety Report 4920804-6 (Version None)
Quarter: 2006Q1

REPORT INFORMATION
  Report Type: 
  Country: None (occurrence: None)
  Receive Date: 20060217
  Receipt Date: 20060201
  Transmission Date: 20060701
  Serious: Yes (Hospitalization)
  Sender: FDA-Public Use
  Company Number: TRP_0670_2005

PATIENT
  Age: 43 Year
  Sex: Male
  Weight: 133.8111 kg

DRUGS (3)
  1. RIBASPHERE/RIBAVIRIN/THREE RIVERS PHARMA/200 MG [Suspect]
     Indication: HEPATITIS C
     Dosage: 600 MG BID PO
     Route: 048
     Dates: start: 20050824, end: 20051101
  2. PEG-INTRON [Suspect]
     Indication: HEPATITIS C
     Dosage: 600 MG BID PO
     Route: 048
     Dates: start: 20050824, end: 20051101
  3. IBUPROFEN [Concomitant]

REACTIONS (10)
  - AMMONIA INCREASED [None]
  - COMA HEPATIC [None]
  - DIVERTICULITIS [None]
  - DRUG SCREEN POSITIVE [None]
  - HYPERSOMNIA [None]
  - INJECTION SITE ERYTHEMA [None]
  - INJECTION SITE PAIN [None]
  - MEMORY IMPAIRMENT [None]
  - OEDEMA PERIPHERAL [None]
  - RASH [None]
